FAERS Safety Report 7509183-8 (Version None)
Quarter: 2011Q2

REPORT INFORMATION
  Report Type: 
  Country: None (occurrence: None)
  Receive Date: 20110527
  Receipt Date: 20110127
  Transmission Date: 20111010
  Serious: No
  Sender: FDA-Public Use
  Company Number: US-MYLANLABS-2011S1002124

PATIENT
  Age: 62 Year
  Sex: Female

DRUGS (2)
  1. AMITRIPTYLINE HCL [Suspect]
     Indication: FIBROMYALGIA
     Route: 048
     Dates: start: 20101228
  2. ONGLYZA [Concomitant]
     Indication: DIABETES MELLITUS

REACTIONS (5)
  - ABDOMINAL PAIN UPPER [None]
  - PSYCHOMOTOR HYPERACTIVITY [None]
  - DRY MOUTH [None]
  - DISTURBANCE IN ATTENTION [None]
  - HEADACHE [None]
